FAERS Safety Report 12357205 (Version 1)
Quarter: 2016Q2

REPORT INFORMATION
  Report Type: Spontaneous
  Country: US (occurrence: US)
  Receive Date: 20160511
  Receipt Date: 20160511
  Transmission Date: 20160815
  Serious: Yes (Other)
  Sender: FDA-Public Use
  Company Number: US-FRI-1000084482

PATIENT
  Age: 67 Year
  Sex: Female
  Weight: 68.03 kg

DRUGS (5)
  1. LINZESS [Suspect]
     Active Substance: LINACLOTIDE
     Indication: IRRITABLE BOWEL SYNDROME
     Dosage: 145 MICROGRAM
     Route: 048
     Dates: start: 2012
  2. LINZESS [Suspect]
     Active Substance: LINACLOTIDE
     Dosage: 145 MICROGRAM
     Route: 048
     Dates: start: 201605
  3. PHENDIMETRAZINE TARTRATE. [Suspect]
     Active Substance: PHENDIMETRAZINE TARTRATE
     Indication: WEIGHT CONTROL
     Dosage: 1/2 OF 105 MG
     Route: 048
     Dates: start: 201604
  4. FLEET ENEMA [Suspect]
     Active Substance: SODIUM PHOSPHATE, DIBASIC\SODIUM PHOSPHATE, MONOBASIC
     Indication: CONSTIPATION
     Route: 054
     Dates: start: 2016, end: 2016
  5. LINZESS [Suspect]
     Active Substance: LINACLOTIDE
     Dosage: 1/2 OF 145 MCG CAPSULE DAILY
     Route: 048
     Dates: end: 201605

REACTIONS (7)
  - Off label use [Not Recovered/Not Resolved]
  - Drug ineffective [Recovered/Resolved]
  - Intentional product misuse [Recovered/Resolved]
  - Proctalgia [Recovered/Resolved]
  - Rectal haemorrhage [Recovered/Resolved]
  - Weight decreased [Recovering/Resolving]
  - Constipation [Recovered/Resolved]

NARRATIVE: CASE EVENT DATE: 2012
